FAERS Safety Report 19631826 (Version 1)
Quarter: 2021Q3

REPORT INFORMATION
  Report Type: Spontaneous
  Country: US (occurrence: US)
  Receive Date: 20210728
  Receipt Date: 20210728
  Transmission Date: 20211014
  Serious: No
  Sender: FDA-Public Use
  Company Number: US-ROCHE-2594199

PATIENT
  Age: 53 Year
  Sex: Female

DRUGS (3)
  1. XELODA [Suspect]
     Active Substance: CAPECITABINE
     Indication: PRODUCT USED FOR UNKNOWN INDICATION
     Route: 048
  2. DDI [Concomitant]
     Active Substance: DIDANOSINE
  3. OMEPRAZOLE. [Concomitant]
     Active Substance: OMEPRAZOLE

REACTIONS (2)
  - Dizziness [Unknown]
  - Fatigue [Unknown]

NARRATIVE: CASE EVENT DATE: 20200616
